FAERS Safety Report 18545516 (Version 1)
Quarter: 2020Q4

REPORT INFORMATION
  Report Type: Spontaneous
  Country: FR (occurrence: FR)
  Receive Date: 20201125
  Receipt Date: 20201125
  Transmission Date: 20210114
  Serious: Yes (Hospitalization, Disabling, Other)
  Sender: FDA-Public Use
  Company Number: FR-BIOGEN-2020BI00947825

PATIENT
  Sex: Male
  Weight: 64 kg

DRUGS (21)
  1. AVONEX [Suspect]
     Active Substance: INTERFERON BETA-1A
  2. AVONEX [Suspect]
     Active Substance: INTERFERON BETA-1A
  3. AVONEX [Suspect]
     Active Substance: INTERFERON BETA-1A
  4. AVONEX [Suspect]
     Active Substance: INTERFERON BETA-1A
  5. AVONEX [Suspect]
     Active Substance: INTERFERON BETA-1A
  6. PROZAC [Concomitant]
     Active Substance: FLUOXETINE HYDROCHLORIDE
     Indication: PRODUCT USED FOR UNKNOWN INDICATION
     Route: 065
  7. DI ANTALVIC [Concomitant]
     Active Substance: ACETAMINOPHEN\PROPOXYPHENE HYDROCHLORIDE
     Indication: PRODUCT USED FOR UNKNOWN INDICATION
     Route: 065
  8. AVONEX [Suspect]
     Active Substance: INTERFERON BETA-1A
  9. AVONEX [Suspect]
     Active Substance: INTERFERON BETA-1A
  10. ENGERIX-B [Suspect]
     Active Substance: HEPATITIS B VIRUS SUBTYPE ADW2 HBSAG SURFACE PROTEIN ANTIGEN
     Indication: PROPHYLAXIS
     Route: 030
     Dates: start: 200709
  11. ENGERIX-B [Suspect]
     Active Substance: HEPATITIS B VIRUS SUBTYPE ADW2 HBSAG SURFACE PROTEIN ANTIGEN
     Route: 030
     Dates: start: 200710
  12. PANTOPRAZOLE [Concomitant]
     Active Substance: PANTOPRAZOLE
     Indication: PRODUCT USED FOR UNKNOWN INDICATION
     Route: 065
  13. AVONEX [Suspect]
     Active Substance: INTERFERON BETA-1A
     Indication: PRODUCT USED FOR UNKNOWN INDICATION
     Route: 030
     Dates: start: 2012
  14. AVONEX [Suspect]
     Active Substance: INTERFERON BETA-1A
  15. AVONEX [Suspect]
     Active Substance: INTERFERON BETA-1A
  16. AVONEX [Suspect]
     Active Substance: INTERFERON BETA-1A
  17. ENGERIX-B [Suspect]
     Active Substance: HEPATITIS B VIRUS SUBTYPE ADW2 HBSAG SURFACE PROTEIN ANTIGEN
     Route: 030
     Dates: start: 200711, end: 200711
  18. AVONEX [Suspect]
     Active Substance: INTERFERON BETA-1A
  19. AVONEX [Suspect]
     Active Substance: INTERFERON BETA-1A
  20. NEURONTIN [Concomitant]
     Active Substance: GABAPENTIN
     Indication: PRODUCT USED FOR UNKNOWN INDICATION
     Route: 065
  21. MYOLASTAN [Concomitant]
     Active Substance: TETRAZEPAM
     Indication: PRODUCT USED FOR UNKNOWN INDICATION
     Route: 065

REACTIONS (36)
  - Incontinence [Not Recovered/Not Resolved]
  - Pollakiuria [Unknown]
  - Tonsillitis [Unknown]
  - Nystagmus [Unknown]
  - Muscle disorder [Not Recovered/Not Resolved]
  - Fatigue [Not Recovered/Not Resolved]
  - Pyrexia [Unknown]
  - White matter lesion [Unknown]
  - Lhermitte^s sign [Unknown]
  - Micturition urgency [Not Recovered/Not Resolved]
  - Ophthalmoplegia [Unknown]
  - Neuralgia [Unknown]
  - Fall [Unknown]
  - Photophobia [Unknown]
  - Mobility decreased [Unknown]
  - Eye pain [Unknown]
  - Phonophobia [Unknown]
  - Head titubation [Unknown]
  - Atrophy [Unknown]
  - Dizziness [Unknown]
  - Gait disturbance [Unknown]
  - Hemiparesis [Unknown]
  - Infection [Unknown]
  - Obesity [Unknown]
  - Attention deficit hyperactivity disorder [Unknown]
  - Bone marrow oedema [Unknown]
  - Nocturia [Unknown]
  - Vision blurred [Unknown]
  - Sleep disorder [Unknown]
  - Paresis [Unknown]
  - Depression [Not Recovered/Not Resolved]
  - Angina pectoris [Unknown]
  - Chest pain [Unknown]
  - Pharyngitis [Unknown]
  - Discomfort [Unknown]
  - Pain [Unknown]

NARRATIVE: CASE EVENT DATE: 2012
